FAERS Safety Report 21570986 (Version 1)
Quarter: 2022Q4

REPORT INFORMATION
  Report Type: Spontaneous
  Country: US (occurrence: US)
  Receive Date: 20221109
  Receipt Date: 20221109
  Transmission Date: 20230113
  Serious: No
  Sender: FDA-Public Use
  Company Number: US-APOTEX-2022AP010790

PATIENT
  Age: 8 Month
  Sex: Male

DRUGS (2)
  1. SIROLIMUS [Suspect]
     Active Substance: SIROLIMUS
     Indication: Hamartoma
     Dosage: 0.5 MILLIGRAM, Q.O.D.
     Route: 048
  2. SIROLIMUS [Suspect]
     Active Substance: SIROLIMUS
     Dosage: 2 MILLIGRAM, Q.O.D. (THE TARGET SERUM TROUGH LEVEL WAS 5.0 NG/ML)
     Route: 048

REACTIONS (4)
  - Off label use [Unknown]
  - Upper respiratory tract infection [Unknown]
  - Ear infection [Unknown]
  - Hypercholesterolaemia [Unknown]
